FAERS Safety Report 6827068-7 (Version None)
Quarter: 2010Q3

REPORT INFORMATION
  Report Type: 
  Country: None (occurrence: None)
  Receive Date: 20100709
  Receipt Date: 20100706
  Transmission Date: 20110219
  Serious: Yes (Disabling, Other)
  Sender: FDA-Public Use
  Company Number: US-MERCK-1001USA01368

PATIENT
  Age: 81 Year
  Sex: Male
  Weight: 73 kg

DRUGS (5)
  1. FOSAMAX [Suspect]
     Indication: OSTEOPOROSIS PROPHYLAXIS
     Route: 048
     Dates: start: 20040401, end: 20070101
  2. QUINAPRIL HYDROCHLORIDE [Concomitant]
     Indication: HYPERTENSION
     Route: 065
     Dates: start: 19990101
  3. ASPIRIN [Concomitant]
     Indication: CARDIAC DISORDER
     Route: 065
  4. ASPIRIN [Concomitant]
     Indication: PAIN
     Route: 065
  5. LIPITOR [Concomitant]
     Indication: BLOOD CHOLESTEROL INCREASED
     Route: 065
     Dates: start: 19990101

REACTIONS (25)
  - ANXIETY [None]
  - AORTIC ANEURYSM [None]
  - CERVICAL DYSPLASIA [None]
  - CHEST PAIN [None]
  - CHRONIC OBSTRUCTIVE PULMONARY DISEASE [None]
  - DENTAL CARIES [None]
  - DIVERTICULUM INTESTINAL [None]
  - DYSLIPIDAEMIA [None]
  - FALL [None]
  - GASTROOESOPHAGEAL REFLUX DISEASE [None]
  - HAEMORRHOIDS [None]
  - HELICOBACTER GASTRITIS [None]
  - IRRITABLE BOWEL SYNDROME [None]
  - OESOPHAGITIS [None]
  - OSTEONECROSIS OF JAW [None]
  - OSTEOPENIA [None]
  - RENAL CYST [None]
  - RHINITIS ALLERGIC [None]
  - SPINAL FRACTURE [None]
  - TOOTH DISORDER [None]
  - TOOTH FRACTURE [None]
  - TOOTH IMPACTED [None]
  - TOOTH LOSS [None]
  - TOOTHACHE [None]
  - WRIST FRACTURE [None]
